FAERS Safety Report 9009037 (Version 2)
Quarter: 2013Q2

REPORT INFORMATION
  Report Type: Spontaneous
  Country: DK (occurrence: DK)
  Receive Date: 20130111
  Receipt Date: 20130411
  Transmission Date: 20140414
  Serious: Yes (Disabling)
  Sender: FDA-Public Use
  Company Number: DK-NOVOPROD-368237

PATIENT
  Age: 60 Year
  Sex: Male
  Weight: 110 kg

DRUGS (5)
  1. VICTOZA [Suspect]
     Indication: TYPE 2 DIABETES MELLITUS
     Dosage: DOSIS: 1,2 MG DGL , STYRKE: 6 MG/ML
     Route: 058
     Dates: start: 20120801, end: 20121001
  2. WARFARIN [Concomitant]
     Dates: start: 2000
  3. RAMIPRIL [Concomitant]
     Dates: start: 2000
  4. AMLODIPIN [Concomitant]
     Dates: start: 2000
  5. CRESTOR [Concomitant]
     Dates: start: 2000

REACTIONS (4)
  - Tremor [Recovering/Resolving]
  - Urinary retention [Recovered/Resolved]
  - Gastric pH decreased [Recovered/Resolved]
  - Weight decreased [Recovered/Resolved]
